FAERS Safety Report 8313156 (Version 4)
Quarter: 2014Q1

REPORT INFORMATION
  Report Type: Spontaneous
  Country: US (occurrence: US)
  Receive Date: 20111228
  Receipt Date: 20140117
  Transmission Date: 20141002
  Serious: Yes (Other)
  Sender: FDA-Public Use
  Company Number: US-BAYER-2011-123055

PATIENT
  Age: 29 Year
  Sex: Female
  Weight: 52.15 kg

DRUGS (8)
  1. YAZ [Suspect]
     Indication: CONTRACEPTION
     Dosage: UNK
     Dates: start: 200901, end: 200910
  2. CASODEX [Concomitant]
  3. METHYLPREDNISOLONE [Concomitant]
     Dosage: 4 MG, UNK
     Route: 048
     Dates: start: 20101020
  4. DICLOFENAC [Concomitant]
     Dosage: 75 MG, UNK
     Route: 048
     Dates: start: 20101020
  5. SULFASALAZINE [Concomitant]
     Dosage: 500 MG, UNK
     Route: 048
     Dates: start: 20101020
  6. VALACICLOVIR [Concomitant]
     Dosage: 1 G, UNK
     Route: 048
     Dates: start: 20101024
  7. TRIAMCINOLONE [Concomitant]
     Dosage: 0.5 UNK, UNK
     Route: 061
     Dates: start: 20101106
  8. PROMETHAZINE - CODEINE [CODEINE PHOSPHATE,PROMETHAZINE HYDROCHLORI [Concomitant]
     Dosage: UNK
     Route: 048
     Dates: start: 20101221

REACTIONS (11)
  - Biliary dyskinesia [None]
  - Cholecystitis chronic [None]
  - Abdominal pain upper [None]
  - Colitis [None]
  - Nausea [None]
  - Food allergy [None]
  - Scar [None]
  - Musculoskeletal pain [None]
  - Procedural pain [None]
  - Constipation [None]
  - Scar pain [None]
